FAERS Safety Report 5852711-9 (Version None)
Quarter: 2008Q3

REPORT INFORMATION
  Report Type: 
  Country: None (occurrence: None)
  Receive Date: 20080819
  Receipt Date: 20080807
  Transmission Date: 20090109
  Serious: Yes (Death, Life-Threatening, Hospitalization)
  Sender: FDA-Public Use
  Company Number: 003928

PATIENT
  Age: 34 Year
  Sex: Male

DRUGS (8)
  1. BUSULFEX [Suspect]
     Indication: STEM CELL TRANSPLANT
     Dosage: 22.5 ML, INTRAVENOUS, 30 ML, DAILY DOSE; INTRAVENOUS, 7.5 ML, DAILY DOSE; INTRAVENOUS
     Route: 042
     Dates: start: 20070929, end: 20070929
  2. BUSULFEX [Suspect]
     Indication: STEM CELL TRANSPLANT
     Dosage: 22.5 ML, INTRAVENOUS, 30 ML, DAILY DOSE; INTRAVENOUS, 7.5 ML, DAILY DOSE; INTRAVENOUS
     Route: 042
     Dates: start: 20070930, end: 20070930
  3. BUSULFEX [Suspect]
     Indication: STEM CELL TRANSPLANT
     Dosage: 22.5 ML, INTRAVENOUS, 30 ML, DAILY DOSE; INTRAVENOUS, 7.5 ML, DAILY DOSE; INTRAVENOUS
     Route: 042
     Dates: start: 20071001, end: 20071001
  4. FLUDARABINE PHOSPHATE [Concomitant]
  5. VALPROATE SODIUM [Concomitant]
  6. NARTOGRASTIM (NARTOGRASTIM) [Concomitant]
  7. METHOTREXATE [Concomitant]
  8. TACROLIMUS [Concomitant]

REACTIONS (19)
  - ACUTE GRAFT VERSUS HOST DISEASE [None]
  - ADENOVIRAL HAEMORRHAGIC CYSTITIS [None]
  - ANOREXIA [None]
  - ASCITES [None]
  - BONE MARROW FAILURE [None]
  - BONE MARROW TRANSPLANT [None]
  - CANDIDA SEPSIS [None]
  - CYTOMEGALOVIRUS VIRAEMIA [None]
  - DIARRHOEA [None]
  - DYSURIA [None]
  - HEPATITIS C VIRUS TEST [None]
  - HISTIOCYTOSIS HAEMATOPHAGIC [None]
  - LIVER DISORDER [None]
  - MALAISE [None]
  - MUCOUS MEMBRANE DISORDER [None]
  - RENAL FAILURE [None]
  - SEPSIS [None]
  - STAPHYLOCOCCAL SEPSIS [None]
  - STOMATITIS [None]
